FAERS Safety Report 6553807-9 (Version None)
Quarter: 2010Q1

REPORT INFORMATION
  Report Type: 
  Country: None (occurrence: None)
  Receive Date: 20100125
  Receipt Date: 20100125
  Transmission Date: 20100710
  Serious: Yes (Other)
  Sender: FDA-Public Use
  Company Number: None

PATIENT
  Sex: Female
  Weight: 86.1834 kg

DRUGS (2)
  1. BUDEPRION XL 150 MCG. [Suspect]
     Indication: DEPRESSION
     Dosage: 150 MG. 1 TIME A DAY WAS ON MED. 11/1/09 WEANED OFF
     Dates: start: 20091101
  2. BUDEPRION XL 150 MCG. [Suspect]
     Indication: SMOKING CESSATION THERAPY
     Dosage: 150 MG. 1 TIME A DAY WAS ON MED. 11/1/09 WEANED OFF
     Dates: start: 20091101

REACTIONS (4)
  - ANXIETY [None]
  - BLOOD PRESSURE SYSTOLIC INCREASED [None]
  - CONDITION AGGRAVATED [None]
  - PANIC ATTACK [None]
